FAERS Safety Report 10872305 (Version 1)
Quarter: 2015Q1

REPORT INFORMATION
  Report Type: Report from Study
  Country: BR (occurrence: BR)
  Receive Date: 20150226
  Receipt Date: 20150226
  Transmission Date: 20150721
  Serious: Yes (Hospitalization, Disabling, Other)
  Sender: FDA-Public Use
  Company Number: BR-ABBVIE-15K-020-1350628-00

PATIENT
  Age: 81 Year
  Sex: Male

DRUGS (4)
  1. HUMIRA [Suspect]
     Active Substance: ADALIMUMAB
     Indication: RHEUMATOID ARTHRITIS
     Route: 065
     Dates: end: 201410
  2. DOXAZOSIN MESYLATE. [Concomitant]
     Active Substance: DOXAZOSIN MESYLATE
     Indication: PRODUCT USED FOR UNKNOWN INDICATION
     Dosage: AT NIGHT
     Route: 048
     Dates: start: 201501
  3. METHOTREXATE/ FOLIC ACID/ UNKNOWN ASSOCIATIONS [Concomitant]
     Indication: RHEUMATOID ARTHRITIS
     Dosage: ON TUESDAYS AND WEDNESDAYS
     Route: 048
  4. LORAX [Concomitant]
     Active Substance: LORAZEPAM
     Indication: SEDATIVE THERAPY
     Dosage: AT NIGHT
     Route: 048

REACTIONS (8)
  - Aphasia [Not Recovered/Not Resolved]
  - Pneumonia [Recovered/Resolved]
  - Bedridden [Not Recovered/Not Resolved]
  - Dementia Alzheimer^s type [Unknown]
  - Angiopathy [Unknown]
  - Dementia [Unknown]
  - Mobility decreased [Not Recovered/Not Resolved]
  - Prostatic disorder [Unknown]

NARRATIVE: CASE EVENT DATE: 201410
